FAERS Safety Report 6294238-9 (Version None)
Quarter: 2009Q3

REPORT INFORMATION
  Report Type: 
  Country: None (occurrence: None)
  Receive Date: 20090803
  Receipt Date: 20090330
  Transmission Date: 20100115
  Serious: No
  Sender: FDA-Public Use
  Company Number: A0776099A

PATIENT
  Age: 39 Year
  Sex: Male

DRUGS (2)
  1. NICORETTE [Suspect]
  2. COMMIT [Suspect]

REACTIONS (8)
  - ABDOMINAL DISCOMFORT [None]
  - ABDOMINAL DISTENSION [None]
  - DIZZINESS [None]
  - DRUG INEFFECTIVE [None]
  - INTENTIONAL DRUG MISUSE [None]
  - NAUSEA [None]
  - NICOTINE DEPENDENCE [None]
  - PARAESTHESIA [None]
